FAERS Safety Report 5496980-6 (Version None)
Quarter: 2007Q4

REPORT INFORMATION
  Report Type: 
  Country: None (occurrence: None)
  Receive Date: 20071023
  Receipt Date: 20071009
  Transmission Date: 20080405
  Serious: Yes (Death, Hospitalization, Disabling)
  Sender: FDA-Public Use
  Company Number: 2007P1000672

PATIENT
  Age: 52 Year
  Sex: Female

DRUGS (2)
  1. BUSULFAN (BUSULFAN) [Suspect]
     Indication: STEM CELL TRANSPLANT
     Dosage: 26.8 ML; X1; IV
     Route: 042
     Dates: start: 20070611, end: 20070612
  2. FLUDARABINE PHOSPHATE [Concomitant]

REACTIONS (10)
  - ANOREXIA [None]
  - BONE MARROW TRANSPLANT [None]
  - DIARRHOEA [None]
  - ENTEROCOCCAL SEPSIS [None]
  - NAUSEA [None]
  - PATHOGEN RESISTANCE [None]
  - RESPIRATORY FAILURE [None]
  - STAPHYLOCOCCAL SEPSIS [None]
  - STOMATITIS [None]
  - VENOOCCLUSIVE LIVER DISEASE [None]
